FAERS Safety Report 25396389 (Version 1)
Quarter: 2025Q2

REPORT INFORMATION
  Report Type: Spontaneous
  Country: US (occurrence: None)
  Receive Date: 20250604
  Receipt Date: 20250604
  Transmission Date: 20250717
  Serious: Yes (Hospitalization, Other)
  Sender: FDA-CTU
  Company Number: None

PATIENT
  Age: 68 Year
  Sex: Female

DRUGS (2)
  1. TYMLOS [Suspect]
     Active Substance: ABALOPARATIDE
     Indication: Senile osteoporosis
     Dosage: OTHER STRENGTH : 3120MCG/1.56ML;?FREQUENCY : DAILY;?
     Route: 058
  2. RITUXAN [Suspect]
     Active Substance: RITUXIMAB

REACTIONS (10)
  - Pneumonia [None]
  - Viral infection [None]
  - Weight decreased [None]
  - Diarrhoea [None]
  - Fall [None]
  - Limb injury [None]
  - Wound infection staphylococcal [None]
  - Anaemia [None]
  - Rheumatoid arthritis [None]
  - Therapy interrupted [None]
